FAERS Safety Report 25929861 (Version 2)
Quarter: 2025Q4

REPORT INFORMATION
  Report Type: Report from Study
  Country: US (occurrence: US)
  Receive Date: 20251016
  Receipt Date: 20251110
  Transmission Date: 20260117
  Serious: Yes (Other)
  Sender: ABBVIE
  Company Number: US-ABBVIE-6501568

PATIENT
  Age: 59 Year
  Sex: Female

DRUGS (1)
  1. SKYRIZI [Suspect]
     Active Substance: RISANKIZUMAB-RZAA
     Indication: Psoriasis
     Route: 058
     Dates: start: 20250522, end: 20251104

REACTIONS (8)
  - Chemotherapy [Unknown]
  - Visual impairment [Unknown]
  - Bronchitis [Recovered/Resolved]
  - Headache [Recovered/Resolved]
  - Immunosuppression [Unknown]
  - Hypersomnia [Unknown]
  - Pain [Unknown]
  - COVID-19 [Recovered/Resolved]

NARRATIVE: CASE EVENT DATE: 20250101
